FAERS Safety Report 9795600 (Version 1)
Quarter: 2014Q1

REPORT INFORMATION
  Report Type: Spontaneous
  Country: US (occurrence: US)
  Receive Date: 20140103
  Receipt Date: 20140103
  Transmission Date: 20141002
  Serious: Yes (Hospitalization)
  Sender: FDA-Public Use
  Company Number: US-BAYER-2014-000802

PATIENT
  Age: 36 Year
  Sex: Female
  Weight: 65.76 kg

DRUGS (7)
  1. YAZ [Suspect]
  2. YASMIN [Suspect]
  3. AMOXIL [Concomitant]
     Dosage: 500 MG, UNK
  4. NABUMETONE [Concomitant]
     Dosage: 500 MG, UNK
  5. PROCARDIA [Concomitant]
     Dosage: 30 MG, UNK
  6. VERAPAMIL HYDROCHLORIDE [Concomitant]
     Indication: RAYNAUD^S PHENOMENON
     Dosage: 120 MG, TID
     Route: 048
  7. MULTIVITAMIN [Concomitant]

REACTIONS (3)
  - Deep vein thrombosis [None]
  - Axillary vein thrombosis [None]
  - Subclavian vein thrombosis [None]
